FAERS Safety Report 9519097 (Version 1)
Quarter: 2013Q3

REPORT INFORMATION
  Report Type: Spontaneous
  Country: ES (occurrence: None)
  Receive Date: 20130910
  Receipt Date: 20130910
  Transmission Date: 20140515
  Serious: Yes (Other)
  Sender: FDA-Public Use
  Company Number: ENTC2013-0321

PATIENT
  Age: 66 Year
  Sex: Female

DRUGS (5)
  1. LEVODOPA-CARBIDOPA-ENTACAPONE [Suspect]
     Indication: PARKINSON^S DISEASE
     Dosage: 2 TABLETS PER DAY (150 MG)
  2. LEVODOPA-CARBIDOPA [Suspect]
     Indication: PARKINSON^S DISEASE
     Dosage: 4 DF PER DAY
  3. AMANTADINE [Suspect]
     Indication: PARKINSON^S DISEASE
     Dosage: 100 MG, 2 DF PER DAY
  4. RASAGILINE [Suspect]
     Indication: MOTOR DYSFUNCTION
  5. DULOXETINE [Suspect]
     Indication: DEPRESSION

REACTIONS (2)
  - Drug interaction [None]
  - Serotonin syndrome [None]
